APPROVED DRUG PRODUCT: FEXOFENADINE HYDROCHLORIDE AND PSEUDOEPHEDRINE HYDROCHLORIDE
Active Ingredient: FEXOFENADINE HYDROCHLORIDE; PSEUDOEPHEDRINE HYDROCHLORIDE
Strength: 180MG;240MG
Dosage Form/Route: TABLET, EXTENDED RELEASE;ORAL
Application: A215232 | Product #001
Applicant: AUROBINDO PHARMA LTD
Approved: Apr 17, 2025 | RLD: No | RS: No | Type: DISCN